FAERS Safety Report 6639181-8 (Version None)
Quarter: 2010Q1

REPORT INFORMATION
  Report Type: 
  Country: None (occurrence: None)
  Receive Date: 20100317
  Receipt Date: 20100315
  Transmission Date: 20100710
  Serious: Yes (Other)
  Sender: FDA-Public Use
  Company Number: NO-MERCK-1003NOR00005

PATIENT
  Age: 62 Year
  Sex: Female

DRUGS (4)
  1. ZOCOR [Suspect]
     Route: 048
     Dates: end: 20090101
  2. LIPITOR [Suspect]
     Indication: HYPERCHOLESTEROLAEMIA
     Route: 048
     Dates: start: 20090101
  3. FLUCONAZOLE [Concomitant]
     Indication: FUNGAL INFECTION
     Route: 065
  4. LEVOTHYROXINE SODIUM [Concomitant]
     Route: 065

REACTIONS (6)
  - ALOPECIA [None]
  - CHEST PAIN [None]
  - DYSPEPSIA [None]
  - MUSCLE SPASMS [None]
  - MUSCULAR WEAKNESS [None]
  - PAIN IN EXTREMITY [None]
